FAERS Safety Report 7588999-6 (Version None)
Quarter: 2011Q3

REPORT INFORMATION
  Report Type: 
  Country: None (occurrence: None)
  Receive Date: 20110705
  Receipt Date: 20110624
  Transmission Date: 20111222
  Serious: Yes (Other)
  Sender: FDA-Public Use
  Company Number: GB-TEVA-288795ISR

PATIENT
  Age: 53 Year
  Sex: Male
  Weight: 130 kg

DRUGS (2)
  1. WARFARIN SODIUM [Suspect]
     Indication: ANTICOAGULANT THERAPY
     Dosage: 8 MILLIGRAM;
     Route: 048
  2. WARFARIN SODIUM [Suspect]
     Indication: MITRAL VALVE REPAIR
     Dosage: 6.5 MILLIGRAM;
     Route: 048
     Dates: start: 20110320

REACTIONS (3)
  - ARTHRALGIA [None]
  - PERIPHERAL COLDNESS [None]
  - MUSCULOSKELETAL STIFFNESS [None]
